FAERS Safety Report 24056051 (Version 1)
Quarter: 2024Q3

REPORT INFORMATION
  Report Type: Spontaneous
  Country: JP (occurrence: JP)
  Receive Date: 20240705
  Receipt Date: 20240705
  Transmission Date: 20241016
  Serious: Yes (Other)
  Sender: PFIZER
  Company Number: JP-PFIZER INC-PV202400088028

PATIENT
  Age: 9 Decade

DRUGS (1)
  1. TAFAMIDIS [Suspect]
     Active Substance: TAFAMIDIS
     Dosage: 61 MG
     Route: 048

REACTIONS (3)
  - Renal impairment [Unknown]
  - Decreased appetite [Unknown]
  - Dehydration [Unknown]
